FAERS Safety Report 6736404-1 (Version None)
Quarter: 2010Q2

REPORT INFORMATION
  Report Type: 
  Country: None (occurrence: None)
  Receive Date: 20100521
  Receipt Date: 20100513
  Transmission Date: 20101027
  Serious: Yes (Hospitalization)
  Sender: FDA-Public Use
  Company Number: JP-MERCK-1005USA01315

PATIENT
  Age: 58 Year
  Sex: Male

DRUGS (3)
  1. JANUVIA [Suspect]
     Indication: TYPE 2 DIABETES MELLITUS
     Route: 048
     Dates: start: 20100415, end: 20100430
  2. GLIMICRON [Concomitant]
     Route: 065
     Dates: start: 20020614
  3. MELBIN [Concomitant]
     Route: 065
     Dates: start: 20050713

REACTIONS (1)
  - HEPATITIS [None]
